FAERS Safety Report 5585821-4 (Version None)
Quarter: 2008Q1

REPORT INFORMATION
  Report Type: 
  Country: None (occurrence: None)
  Receive Date: 20080109
  Receipt Date: 20071226
  Transmission Date: 20080703
  Serious: No
  Sender: FDA-Public Use
  Company Number: US-BAYER-200714268BCC

PATIENT
  Age: 83 Year
  Sex: Male
  Weight: 77 kg

DRUGS (5)
  1. ALEVE (CAPLET) [Suspect]
     Indication: NECK PAIN
     Route: 048
     Dates: start: 20071201, end: 20071213
  2. METOPROLOL TARTRATE [Concomitant]
  3. DOXAZOSIN MESYLATE [Concomitant]
  4. HYDROCHLORIDE [Concomitant]
  5. AVODART [Concomitant]

REACTIONS (2)
  - CONSTIPATION [None]
  - DYSURIA [None]
